FAERS Safety Report 11570629 (Version 1)
Quarter: 2015Q3

REPORT INFORMATION
  Report Type: Spontaneous
  Country: US (occurrence: US)
  Receive Date: 20150916
  Receipt Date: 20150916
  Transmission Date: 20151125
  Serious: No
  Sender: FDA-Public Use
  Company Number: US-ELI_LILLY_AND_COMPANY-US200909002289

PATIENT
  Age: 64 Year
  Sex: Female

DRUGS (1)
  1. FORTEO [Suspect]
     Active Substance: TERIPARATIDE
     Indication: OSTEOPOROSIS
     Dosage: 20 UG, DAILY (1/D)
     Dates: start: 200903

REACTIONS (11)
  - Arthritis [Unknown]
  - Pain of skin [Unknown]
  - Joint injury [Unknown]
  - Burning sensation [Unknown]
  - Pruritus [Unknown]
  - Vitreous floaters [Unknown]
  - Rash [Unknown]
  - Skin disorder [Not Recovered/Not Resolved]
  - Joint stiffness [Recovering/Resolving]
  - Meniscus injury [Unknown]
  - Asthenia [Unknown]

NARRATIVE: CASE EVENT DATE: 2009
